FAERS Safety Report 6870652-5 (Version None)
Quarter: 2010Q3

REPORT INFORMATION
  Report Type: 
  Country: None (occurrence: None)
  Receive Date: 20100723
  Receipt Date: 20100712
  Transmission Date: 20110219
  Serious: Yes (Other)
  Sender: FDA-Public Use
  Company Number: PHHY2010US30163

PATIENT
  Sex: Female
  Weight: 66.667 kg

DRUGS (12)
  1. RECLAST [Suspect]
     Indication: OSTEOPOROSIS
     Dosage: 5 MG
     Dates: start: 20100414
  2. ESTRACE [Concomitant]
     Indication: HORMONE REPLACEMENT THERAPY
     Dosage: TWICE A WEEK
     Dates: start: 20070101
  3. TYLENOL [Concomitant]
     Indication: PAIN
     Dosage: PRN
     Route: 048
  4. AMBIEN [Concomitant]
     Indication: INSOMNIA
     Route: 048
  5. LIPITOR [Concomitant]
     Indication: BLOOD CHOLESTEROL ABNORMAL
  6. BISOPROLOL [Concomitant]
     Dosage: 0.5 QOD
  7. PLAVIX [Concomitant]
  8. ATEBETA [Concomitant]
  9. ATIVAN [Concomitant]
  10. ZOLOFT [Concomitant]
  11. ZOLOFT [Concomitant]
  12. AMBIEN [Concomitant]

REACTIONS (2)
  - ARTHRALGIA [None]
  - MUSCLE CONTRACTURE [None]
